FAERS Safety Report 13023343 (Version 1)
Quarter: 2016Q4

REPORT INFORMATION
  Report Type: Spontaneous
  Country: US (occurrence: US)
  Receive Date: 20161211
  Receipt Date: 20161211
  Transmission Date: 20170207
  Serious: Yes (Disabling)
  Sender: FDA-Public Use
  Company Number: None

PATIENT
  Age: 57 Year
  Sex: Female
  Weight: 87.75 kg

DRUGS (5)
  1. LEVOTHYROXINE SODIUM 25 MCG TABS SANDOZ [Suspect]
     Active Substance: LEVOTHYROXINE SODIUM
     Indication: HYPOTHYROIDISM
     Dosage: ?          OTHER STRENGTH:MCG;QUANTITY:.5 CAPSULE(S);?
     Route: 048
     Dates: start: 20161115, end: 20161205
  2. MULTI-VITAMIN [Concomitant]
     Active Substance: .ALPHA.-TOCOPHEROL ACETATE, DL-\ASCORBIC ACID\CYANOCOBALAMIN\FLUORIDE ION\FOLIC ACID\NIACIN\PYRIDOXINE\RIBOFLAVIN\THIAMINE\VITAMIN A\VITAMIN D
  3. VITAMIN D [Concomitant]
     Active Substance: CHOLECALCIFEROL
  4. FISH OIL [Concomitant]
     Active Substance: FISH OIL
  5. LEVOTHYROXINE SODIUM 25 MCG TABS SANDOZ [Suspect]
     Active Substance: LEVOTHYROXINE SODIUM
     Indication: AUTOIMMUNE THYROIDITIS
     Dosage: ?          OTHER STRENGTH:MCG;QUANTITY:.5 CAPSULE(S);?
     Route: 048
     Dates: start: 20161115, end: 20161205

REACTIONS (6)
  - Arthralgia [None]
  - Muscular weakness [None]
  - Gait disturbance [None]
  - Muscle spasms [None]
  - Feeling abnormal [None]
  - Joint stiffness [None]

NARRATIVE: CASE EVENT DATE: 20161115
